FAERS Safety Report 21012629 (Version 1)
Quarter: 2022Q2

REPORT INFORMATION
  Report Type: Spontaneous
  Country: US (occurrence: None)
  Receive Date: 20220626
  Receipt Date: 20220626
  Transmission Date: 20220721
  Serious: Yes (Other)
  Sender: FDA-Public Use
  Company Number: None

PATIENT
  Age: 36 Year
  Sex: Female
  Weight: 93 kg

DRUGS (1)
  1. PAXLOVID [Suspect]
     Active Substance: NIRMATRELVIR\RITONAVIR
     Indication: COVID-19

REACTIONS (5)
  - Urticaria [None]
  - Pruritus [None]
  - Stomatitis [None]
  - Vulvovaginal mycotic infection [None]
  - Lip swelling [None]

NARRATIVE: CASE EVENT DATE: 20220626
